FAERS Safety Report 8065613-7 (Version None)
Quarter: 2011Q4

REPORT INFORMATION
  Report Type: 
  Country: None (occurrence: None)
  Receive Date: 20111221
  Receipt Date: 20101230
  Transmission Date: 20120403
  Serious: Yes (Other)
  Sender: FDA-Public Use
  Company Number: PHHY2010US89425

PATIENT
  Age: 18 Year
  Sex: Male

DRUGS (2)
  1. EXJADE [Suspect]
     Dosage: 1000 MG, DAILY, ORAL, 500 MG, DAILY
     Route: 048
     Dates: start: 20101202
  2. EXJADE [Suspect]
     Dosage: 1000 MG, DAILY, ORAL, 500 MG, DAILY
     Route: 048
     Dates: end: 20101118

REACTIONS (1)
  - ALANINE AMINOTRANSFERASE INCREASED [None]
